FAERS Safety Report 9654349 (Version 1)
Quarter: 2013Q4

REPORT INFORMATION
  Report Type: Spontaneous
  Country: US (occurrence: US)
  Receive Date: 20131029
  Receipt Date: 20131029
  Transmission Date: 20140711
  Serious: No
  Sender: FDA-Public Use
  Company Number: US-009507513-1310USA013329

PATIENT
  Sex: Male
  Weight: 108.84 kg

DRUGS (1)
  1. MIRALAX [Suspect]
     Indication: CONSTIPATION
     Dosage: 51 G, QPM
     Route: 048

REACTIONS (2)
  - Overdose [Unknown]
  - Wrong technique in drug usage process [Unknown]
